FAERS Safety Report 5062454-X (Version None)
Quarter: 2006Q3

REPORT INFORMATION
  Report Type: 
  Country: None (occurrence: None)
  Receive Date: 20060721
  Receipt Date: 20060720
  Transmission Date: 20061208
  Serious: Yes (Hospitalization)
  Sender: FDA-Public Use
  Company Number: 220266

PATIENT
  Age: 52 Year
  Sex: Male

DRUGS (1)
  1. PULMOZYME [Suspect]
     Indication: CYSTIC FIBROSIS

REACTIONS (3)
  - BRONCHOSPASM [None]
  - DRUG HYPERSENSITIVITY [None]
  - PYREXIA [None]
